FAERS Safety Report 20150545 (Version 15)
Quarter: 2023Q1

REPORT INFORMATION
  Report Type: Spontaneous
  Country: CA (occurrence: CA)
  Receive Date: 20211206
  Receipt Date: 20230329
  Transmission Date: 20230417
  Serious: Yes (Hospitalization, Other)
  Sender: FDA-Public Use
  Company Number: CA-CELLTRION INC.-2021CA016481

PATIENT

DRUGS (12)
  1. INFLECTRA [Suspect]
     Active Substance: INFLIXIMAB-DYYB
     Indication: Crohn^s disease
     Dosage: 600 MG WEEK 2, 6, THEN EVERY 8 WEEKS (PATIENT STARTED WEEK 0 IN HOSPITAL)
     Route: 042
     Dates: start: 20211121
  2. INFLECTRA [Suspect]
     Active Substance: INFLIXIMAB-DYYB
     Dosage: 600 MG WEEK 2, 6, THEN EVERY 8 WEEKS (PATIENT STARTED WEEK 0 IN HOSPITAL)
     Route: 042
     Dates: start: 20220106
  3. INFLECTRA [Suspect]
     Active Substance: INFLIXIMAB-DYYB
     Dosage: 600 MG WEEK 2, 6, THEN EVERY 8 WEEKS (PATIENT STARTED WEEK 0 IN HOSPITAL)
     Route: 042
     Dates: start: 20220304
  4. INFLECTRA [Suspect]
     Active Substance: INFLIXIMAB-DYYB
     Dosage: 600 MG WEEK 2, 6, THEN EVERY 8 WEEKS (PATIENT STARTED WEEK 0 IN HOSPITAL)
     Route: 042
     Dates: start: 20220429
  5. INFLECTRA [Suspect]
     Active Substance: INFLIXIMAB-DYYB
     Dosage: 600 MG WEEK 2, 6, THEN EVERY 8 WEEKS (PATIENT STARTED WEEK 0 IN HOSPITAL)
     Route: 042
     Dates: start: 20220624
  6. INFLECTRA [Suspect]
     Active Substance: INFLIXIMAB-DYYB
     Dosage: 600 MG WEEKS 0. 2. 6, THEN EVERY 8 WEEKSPATIENT HAS STARTED IN HOSPITAL
     Route: 042
     Dates: start: 20220914
  7. INFLECTRA [Suspect]
     Active Substance: INFLIXIMAB-DYYB
     Dosage: 600 MG WEEK 2, 6, THEN EVERY 8 WEEKS (PATIENT STARTED WEEK 0 IN HOSPITAL)
     Route: 042
     Dates: start: 20221108
  8. INFLECTRA [Suspect]
     Active Substance: INFLIXIMAB-DYYB
     Dosage: 600 MG WEEK 2, 6, THEN EVERY 8 WEEKS (PATIENT STARTED WEEK 0 IN HOSPITAL)
     Route: 042
     Dates: start: 20230106
  9. INFLECTRA [Suspect]
     Active Substance: INFLIXIMAB-DYYB
     Dosage: 600 MG WEEK 2, 6, THEN EVERY 8 WEEKS (PATIENT STARTED WEEK 0 IN HOSPITAL)
     Route: 042
     Dates: start: 20230320
  10. ENTOCORT [Concomitant]
     Active Substance: BUDESONIDE
     Dosage: UNK
  11. METHOTREXATE [Concomitant]
     Active Substance: METHOTREXATE
     Dosage: 1 DF
  12. SUBOXONE [Concomitant]
     Active Substance: BUPRENORPHINE HYDROCHLORIDE\NALOXONE HYDROCHLORIDE
     Dosage: UNK
     Dates: end: 202202

REACTIONS (13)
  - Pain [Not Recovered/Not Resolved]
  - Intestinal stenosis [Not Recovered/Not Resolved]
  - Small intestinal obstruction [Not Recovered/Not Resolved]
  - Drug ineffective [Unknown]
  - Inappropriate schedule of product administration [Unknown]
  - Somnolence [Unknown]
  - Condition aggravated [Recovering/Resolving]
  - Arthralgia [Not Recovered/Not Resolved]
  - Anal fissure [Unknown]
  - Pruritus [Not Recovered/Not Resolved]
  - Rash [Not Recovered/Not Resolved]
  - Constipation [Not Recovered/Not Resolved]
  - Malaise [Unknown]

NARRATIVE: CASE EVENT DATE: 20211101
